FAERS Safety Report 16831760 (Version 1)
Quarter: 2019Q4

REPORT INFORMATION
  Report Type: Spontaneous
  Country: US (occurrence: US)
  Receive Date: 20190919
  Receipt Date: 20190919
  Transmission Date: 20200122
  Serious: Yes (Disabling)
  Sender: FDA-Public Use
  Company Number: None

PATIENT
  Age: 30 Year
  Sex: Female
  Weight: 81 kg

DRUGS (6)
  1. PLLY WOMEN^S MULTIVITAMIN X2/DAY [Concomitant]
  2. SUMATRIPTAN 50 MG AS NEEDED FOR MIGRAINES [Concomitant]
  3. CLONAZEPAM 1MG AS NEEDED FOR PANIC [Concomitant]
  4. LEXAPRO 10MG/DAY [Concomitant]
  5. CBD OIL 5M/DAY [Concomitant]
  6. CIPROFLOXACIN HCL [Suspect]
     Active Substance: CIPROFLOXACIN HYDROCHLORIDE
     Indication: URINARY TRACT INFECTION
     Dosage: ?          QUANTITY:14 TABLET(S);?
     Route: 048
     Dates: start: 20190916, end: 20190918

REACTIONS (10)
  - Depression [None]
  - Suicidal ideation [None]
  - Anxiety [None]
  - Arthralgia [None]
  - Headache [None]
  - Dizziness [None]
  - Confusional state [None]
  - Neck pain [None]
  - Nausea [None]
  - Gastrointestinal disorder [None]

NARRATIVE: CASE EVENT DATE: 20190916
